FAERS Safety Report 18906152 (Version 8)
Quarter: 2021Q4

REPORT INFORMATION
  Report Type: Spontaneous
  Country: DE (occurrence: DE)
  Receive Date: 20210217
  Receipt Date: 20211119
  Transmission Date: 20220303
  Serious: Yes (Hospitalization)
  Sender: FDA-Public Use
  Company Number: DE-BIOGEN-2021BI00977538

PATIENT
  Age: 35 Year
  Sex: Female

DRUGS (3)
  1. TYSABRI [Suspect]
     Active Substance: NATALIZUMAB
     Indication: Relapsing-remitting multiple sclerosis
     Route: 042
     Dates: start: 20101021, end: 20201119
  2. DALFAMPRIDINE [Suspect]
     Active Substance: DALFAMPRIDINE
     Indication: Multiple sclerosis
     Route: 065
     Dates: start: 20160530
  3. DALFAMPRIDINE [Suspect]
     Active Substance: DALFAMPRIDINE
     Route: 065

REACTIONS (3)
  - Multiple sclerosis [Recovered/Resolved with Sequelae]
  - Multiple sclerosis relapse [Recovered/Resolved]
  - Depression [Not Recovered/Not Resolved]

NARRATIVE: CASE EVENT DATE: 20180214
